FAERS Safety Report 6723963-8 (Version None)
Quarter: 2010Q2

REPORT INFORMATION
  Report Type: 
  Country: None (occurrence: None)
  Receive Date: 20100513
  Receipt Date: 20100504
  Transmission Date: 20101027
  Serious: Yes (Other)
  Sender: FDA-Public Use
  Company Number: PHHY2010US13826

PATIENT
  Sex: Female

DRUGS (31)
  1. RECLAST [Suspect]
     Indication: OSTEOPOROSIS
     Dosage: 5 MG ONCE
     Route: 042
     Dates: start: 20091012, end: 20091012
  2. BONIVA [Suspect]
  3. PROZAC [Concomitant]
     Dosage: 20 MG, 2 TABLETS, TWICE DAILY
  4. PROZAC [Concomitant]
     Dosage: 20-40 MG ONCE DAILY
     Route: 048
  5. ALBUTEROL [Concomitant]
     Dosage: 1 PUFF EVERY 4 HOURS
  6. AMCINONIDE [Concomitant]
  7. CYCLOCORT [Concomitant]
  8. BUPROPION HCL [Concomitant]
     Indication: DEPRESSION
     Dosage: 75 MG,2 TABLETS THRICE DAILY
  9. CALCIUM CARBONATE [Concomitant]
  10. CYCLOBENZAPRINE [Concomitant]
     Dosage: 10 MG, UNK
  11. CARDURA [Concomitant]
     Dosage: 2 MG TABLET, HALF DAILY
  12. CARDURA [Concomitant]
     Dosage: 2 MG
     Route: 048
  13. ESTROGEN NOS [Concomitant]
  14. DILTIAZEM HCL [Concomitant]
     Dosage: 360 MG, DAILY
     Route: 048
  15. ANTIHISTAMINES [Concomitant]
  16. ALLEGRA [Concomitant]
     Dosage: 180 MG, ONCE, DAILY
     Route: 048
  17. LASIX [Concomitant]
     Dosage: 40 MG, ONCE DAILY
     Route: 048
  18. MIRALAX [Concomitant]
     Indication: INCONTINENCE
     Dosage: 17 G, BID
     Route: 048
  19. PROPYLENE GLYCOL [Concomitant]
     Dosage: 17 G, BID
  20. ACETAMINOPHEN [Concomitant]
  21. VITAMINS [Concomitant]
  22. FISH OIL [Concomitant]
     Dosage: 1200 MG, BID
     Route: 048
  23. NASONEX [Concomitant]
     Dosage: 50 MCG 2 SPRAYS EACH NOSTRIL DAILY
     Route: 045
  24. MULTIPLE VITAMIN [Concomitant]
  25. MULTI-VITAMINS [Concomitant]
     Dosage: 600-1000 UNIT 2 CAPSULE ONCE DAILY
     Route: 048
  26. VITAMINE C [Concomitant]
  27. IRON SUPPLEMENTS [Concomitant]
     Indication: ANAEMIA
  28. SYNTHROID [Concomitant]
     Dosage: 100 UG, QD
     Route: 048
  29. XANAX [Concomitant]
     Dosage: 1 MG
     Route: 048
  30. WELLBATRIN [Concomitant]
     Dosage: 2 DF, TID
     Route: 048
  31. FLEXERIL [Concomitant]
     Dosage: 5 MG TWICW DAILY AS NEEDED
     Route: 048

REACTIONS (16)
  - ADRENAL NEOPLASM [None]
  - ARTHRITIS [None]
  - BLOOD CATECHOLAMINES INCREASED [None]
  - BLOOD THYROID STIMULATING HORMONE INCREASED [None]
  - DEPRESSION [None]
  - EMOTIONAL DISTRESS [None]
  - FEELING ABNORMAL [None]
  - FEELING HOT [None]
  - HYPOCHONDRIASIS [None]
  - INSOMNIA [None]
  - MEMORY IMPAIRMENT [None]
  - NERVOUSNESS [None]
  - NIGHT SWEATS [None]
  - NOREPINEPHRINE INCREASED [None]
  - PYREXIA [None]
  - WEIGHT DECREASED [None]
